FAERS Safety Report 6297919-6 (Version None)
Quarter: 2009Q3

REPORT INFORMATION
  Report Type: 
  Country: None (occurrence: None)
  Receive Date: 20090805
  Receipt Date: 20090727
  Transmission Date: 20100115
  Serious: Yes (Other)
  Sender: FDA-Public Use
  Company Number: A0796930A

PATIENT
  Age: 50 Year
  Sex: Male

DRUGS (15)
  1. REQUIP XL [Suspect]
     Indication: DRUG USE FOR UNKNOWN INDICATION
  2. SINEMET CR [Concomitant]
  3. AZILECT [Concomitant]
  4. CYMBALTA [Concomitant]
  5. KLONOPIN [Concomitant]
  6. AMANTADINE HCL [Concomitant]
  7. SINEMET CR [Concomitant]
  8. UNKNOWN [Concomitant]
  9. TRIHEXYPHENIDYL [Concomitant]
     Dosage: 2MG FOUR TIMES PER DAY
  10. CARBIDOPA-LEVODOPA [Concomitant]
  11. AZILECT [Concomitant]
     Dosage: .5MG PER DAY
  12. CENTRUM [Concomitant]
  13. VITAMIN D [Concomitant]
  14. FLAX OIL [Concomitant]
  15. CO Q 10 [Concomitant]

REACTIONS (21)
  - AKINESIA [None]
  - ASTHENIA [None]
  - BALANCE DISORDER [None]
  - CONTUSION [None]
  - DEPRESSED LEVEL OF CONSCIOUSNESS [None]
  - DRUG EFFECT DELAYED [None]
  - DYSGRAPHIA [None]
  - DYSKINESIA [None]
  - FALL [None]
  - FATIGUE [None]
  - HYPOAESTHESIA [None]
  - HYPOTONIA [None]
  - ILL-DEFINED DISORDER [None]
  - INSOMNIA [None]
  - JOINT SWELLING [None]
  - LOSS OF CONTROL OF LEGS [None]
  - MUSCULAR WEAKNESS [None]
  - MUSCULOSKELETAL DISCOMFORT [None]
  - SENSORY LOSS [None]
  - SOMNOLENCE [None]
  - TREMOR [None]
